FAERS Safety Report 6260055-9 (Version None)
Quarter: 2009Q3

REPORT INFORMATION
  Report Type: 
  Country: None (occurrence: None)
  Receive Date: 20090708
  Receipt Date: 20090617
  Transmission Date: 20100115
  Serious: Yes (Hospitalization)
  Sender: FDA-Public Use
  Company Number: NZ-AVENTIS-200916513GDDC

PATIENT
  Age: 74 Year
  Sex: Male

DRUGS (5)
  1. LEFLUNOMIDE [Suspect]
  2. METHOTREXATE [Suspect]
     Dates: start: 19980101
  3. FOLIC ACID [Concomitant]
     Dosage: DOSE: UNK
     Dates: start: 19980101
  4. ATENOLOL [Concomitant]
     Dosage: DOSE: UNK
  5. FAMOTIDINE [Concomitant]
     Dosage: DOSE: UNK

REACTIONS (1)
  - T-CELL LYMPHOMA [None]
